FAERS Safety Report 8579245-5 (Version None)
Quarter: 2012Q3

REPORT INFORMATION
  Report Type: 
  Country: None (occurrence: None)
  Receive Date: 20120808
  Receipt Date: 20120606
  Transmission Date: 20120928
  Serious: Yes (Other)
  Sender: FDA-Public Use
  Company Number: FR-ROCHE-1095793

PATIENT
  Sex: Female

DRUGS (6)
  1. IRINOTECAN HCL [Concomitant]
     Dates: start: 20100118, end: 20100503
  2. AVASTIN [Suspect]
     Indication: PRODUCT USED FOR UNKNOWN INDICATION
     Dates: start: 20090618, end: 20091228
  3. CAPECITABINE [Concomitant]
     Dosage: TEN CYCLES
     Dates: start: 20090618, end: 20091228
  4. OXALIPLATIN [Concomitant]
     Dates: start: 20090618, end: 20091228
  5. AVASTIN [Suspect]
     Dates: start: 20100118, end: 20100503
  6. IRINOTECAN HCL [Concomitant]
     Dates: start: 20090202, end: 20090414

REACTIONS (5)
  - DECREASED APPETITE [None]
  - DIARRHOEA [None]
  - ASTHENIA [None]
  - DISEASE PROGRESSION [None]
  - NAUSEA [None]
